FAERS Safety Report 9689441 (Version 1)
Quarter: 2013Q4

REPORT INFORMATION
  Report Type: Spontaneous
  Country: US (occurrence: US)
  Receive Date: 20131114
  Receipt Date: 20131114
  Transmission Date: 20140711
  Serious: Yes (Hospitalization, Other)
  Sender: FDA-Public Use
  Company Number: US-RB-060434-13

PATIENT
  Age: 39 Year
  Sex: Male

DRUGS (5)
  1. SUBOXONE TABLET [Suspect]
     Indication: DRUG DEPENDENCE
     Route: 060
     Dates: start: 2007
  2. SUBOXONE FILM [Suspect]
     Indication: DRUG DEPENDENCE
     Dosage: SUBOXONE FILM
     Route: 060
     Dates: end: 20130930
  3. SUBOXONE FILM [Suspect]
     Dosage: UNKNOWN DOSING DETAILS
     Route: 065
     Dates: start: 201310
  4. KLONOPIN [Suspect]
     Indication: ANXIETY
     Route: 048
     Dates: start: 2007, end: 20130930
  5. CYMBALTA [Suspect]
     Indication: DEPRESSION
     Route: 048
     Dates: start: 2007, end: 20130930

REACTIONS (6)
  - Malignant melanoma [Recovered/Resolved]
  - Lymphoedema [Not Recovered/Not Resolved]
  - Asthenia [Not Recovered/Not Resolved]
  - Convulsion [Recovered/Resolved]
  - Drug withdrawal syndrome [Not Recovered/Not Resolved]
  - Anger [Not Recovered/Not Resolved]
